FAERS Safety Report 4846907-2 (Version None)
Quarter: 2005Q4

REPORT INFORMATION
  Report Type: 
  Country: None (occurrence: None)
  Receive Date: 20051202
  Receipt Date: 20051125
  Transmission Date: 20060501
  Serious: Yes (Other)
  Sender: FDA-Public Use
  Company Number: ESWYE178528NOV05

PATIENT
  Age: 80 Year
  Sex: Female

DRUGS (1)
  1. VENLAFAXINE HCL [Suspect]
     Indication: DEPRESSION
     Dosage: 150 MG 1X PER DAY, ORAL
     Route: 048
     Dates: start: 20050604, end: 20050804

REACTIONS (1)
  - HALLUCINATIONS, MIXED [None]
